FAERS Safety Report 19386501 (Version 1)
Quarter: 2021Q2

REPORT INFORMATION
  Report Type: Spontaneous
  Country: GB (occurrence: GB)
  Receive Date: 20210608
  Receipt Date: 20210608
  Transmission Date: 20210717
  Serious: Yes (Disabling, Other)
  Sender: FDA-Public Use
  Company Number: NVSC2021GB119898

PATIENT
  Age: 4 Year
  Sex: Male
  Weight: 35 kg

DRUGS (1)
  1. MONTELUKAST [Suspect]
     Active Substance: MONTELUKAST SODIUM
     Indication: ASTHMA
     Dosage: 4 MG
     Route: 048
     Dates: start: 20141201, end: 20200501

REACTIONS (11)
  - Nausea [Unknown]
  - Productive cough [Unknown]
  - Aggression [Unknown]
  - Mood altered [Recovered/Resolved with Sequelae]
  - Suicidal ideation [Unknown]
  - Pyrexia [Unknown]
  - Nightmare [Unknown]
  - Sleep terror [Unknown]
  - Sleep disorder [Unknown]
  - Psychomotor hyperactivity [Unknown]
  - Mood altered [Unknown]

NARRATIVE: CASE EVENT DATE: 20180501
